FAERS Safety Report 15425664 (Version 1)
Quarter: 2018Q3

REPORT INFORMATION
  Report Type: Spontaneous
  Country: US (occurrence: US)
  Receive Date: 20180925
  Receipt Date: 20180925
  Transmission Date: 20181010
  Serious: Yes (Death)
  Sender: FDA-Public Use
  Company Number: US-PFIZER INC-2018384700

PATIENT
  Age: 64 Year
  Sex: Male

DRUGS (8)
  1. VANCOMYCIN [Concomitant]
     Active Substance: VANCOMYCIN
     Indication: CLOSTRIDIUM DIFFICILE COLITIS
     Dosage: UNK
     Route: 054
  2. METRONIDAZOLE. [Concomitant]
     Active Substance: METRONIDAZOLE
     Indication: CLOSTRIDIUM DIFFICILE COLITIS
     Dosage: UNK
     Route: 042
  3. VANCOMYCIN [Concomitant]
     Active Substance: VANCOMYCIN
     Dosage: UNK, (ENEMA)
     Route: 054
  4. VANCOMYCIN [Concomitant]
     Active Substance: VANCOMYCIN
     Dosage: 1000 MG, 4X/DAY
     Route: 048
  5. VANCOMYCIN [Concomitant]
     Active Substance: VANCOMYCIN
     Dosage: UNK, (VIA NASOGASTRIC)
     Route: 048
  6. CEFOXITIN SODIUM [Suspect]
     Active Substance: CEFOXITIN SODIUM
     Indication: CLOSTRIDIUM DIFFICILE COLITIS
     Dosage: UNK, SINGLE
  7. VANCOMYCIN [Concomitant]
     Active Substance: VANCOMYCIN
     Dosage: 1000 MG, 4X/DAY, (1000 MG COLONIC LAVAGE VANCOMYCIN EVERY 6 H)
     Route: 054
  8. VANCOMYCIN [Concomitant]
     Active Substance: VANCOMYCIN
     Indication: CLOSTRIDIUM DIFFICILE COLITIS
     Dosage: UNK
     Route: 048

REACTIONS (2)
  - Megacolon [Fatal]
  - Pseudomembranous colitis [Fatal]
